FAERS Safety Report 16397872 (Version 2)
Quarter: 2019Q2

REPORT INFORMATION
  Report Type: Report from Study
  Country: US (occurrence: US)
  Receive Date: 20190606
  Receipt Date: 20190628
  Transmission Date: 20190711
  Serious: Yes (Death, Hospitalization, Other)
  Sender: FDA-Public Use
  Company Number: PHEH2019US023887

PATIENT
  Age: 22 Year
  Sex: Male
  Weight: 139 kg

DRUGS (1)
  1. ENTRESTO [Suspect]
     Active Substance: SACUBITRIL\VALSARTAN
     Indication: CARDIAC FAILURE CHRONIC
     Dosage: 50 MG (SACUBITRIL 24MG/VALSARTAN 26 MG), UNK
     Route: 048
     Dates: start: 20190517

REACTIONS (14)
  - Alanine aminotransferase increased [Unknown]
  - White blood cell count increased [Unknown]
  - Death [Fatal]
  - Systolic dysfunction [Unknown]
  - Hepatic failure [Unknown]
  - Bilirubin conjugated increased [Unknown]
  - Aspartate aminotransferase increased [Unknown]
  - Organ failure [Unknown]
  - Tricuspid valve incompetence [Unknown]
  - Pulmonary valve incompetence [Unknown]
  - Brain natriuretic peptide increased [Unknown]
  - Ventricular hypokinesia [Unknown]
  - Pulmonary hypertension [Unknown]
  - Mitral valve incompetence [Unknown]

NARRATIVE: CASE EVENT DATE: 20190524
